FAERS Safety Report 9014816 (Version 1)
Quarter: 2013Q1

REPORT INFORMATION
  Report Type: Spontaneous
  Country: US (occurrence: US)
  Receive Date: 20130116
  Receipt Date: 20130116
  Transmission Date: 20140127
  Serious: Yes (Other)
  Sender: FDA-Public Use
  Company Number: US-009507513-1201USA04182

PATIENT
  Age: 12 Month
  Sex: Male
  Weight: 10.88 kg

DRUGS (3)
  1. SINGULAIR [Suspect]
     Indication: RESPIRATORY TRACT CONGESTION
     Dosage: 4 MG, ONCE
     Route: 048
     Dates: start: 20100219, end: 20100328
  2. SINGULAIR [Suspect]
     Indication: RHINORRHOEA
  3. SINGULAIR [Suspect]
     Indication: SEASONAL ALLERGY

REACTIONS (7)
  - Abnormal behaviour [Unknown]
  - Crying [Unknown]
  - Frustration [Unknown]
  - Middle insomnia [Unknown]
  - Sleep disorder [Unknown]
  - Aggression [Unknown]
  - Restlessness [Unknown]
